FAERS Safety Report 16517266 (Version 1)
Quarter: 2019Q3

REPORT INFORMATION
  Report Type: Spontaneous
  Country: FR (occurrence: FR)
  Receive Date: 20190702
  Receipt Date: 20190702
  Transmission Date: 20191004
  Serious: Yes (Other)
  Sender: FDA-Public Use
  Company Number: FR-MYLANLABS-2019M1060642

PATIENT
  Age: 61 Year
  Sex: Female
  Weight: 54 kg

DRUGS (7)
  1. CHOLECALCIFEROL [Concomitant]
     Active Substance: CHOLECALCIFEROL
     Indication: OSTEOMALACIA
     Dosage: UNK
     Route: 065
  2. PREGABALIN. [Concomitant]
     Active Substance: PREGABALIN
     Indication: PARTIAL SEIZURES
     Dosage: 400 MILLIGRAM, QD,400 MG, PER DAY
     Route: 065
  3. PRIMIDONE. [Interacting]
     Active Substance: PRIMIDONE
     Indication: PARTIAL SEIZURES
     Dosage: 750 MILLIGRAM, QD,750 MG, PER DAY
     Route: 065
  4. CLOBAZAM. [Concomitant]
     Active Substance: CLOBAZAM
     Indication: PARTIAL SEIZURES
     Dosage: 15 MILLIGRAM, QD15 MG, PER DAY
     Route: 065
  5. CARBAMAZEPINE. [Suspect]
     Active Substance: CARBAMAZEPINE
     Indication: PARTIAL SEIZURES
     Dosage: 1200 MILLIGRAM, QD,1200 MG, PER DAY
     Route: 065
  6. RASILEZ [Interacting]
     Active Substance: ALISKIREN
     Indication: HYPERTENSION
     Dosage: 150 MILLIGRAM, QD,150 MG, PER DAY
     Route: 065
  7. INSULIN [Concomitant]
     Active Substance: INSULIN NOS
     Indication: TYPE 2 DIABETES MELLITUS
     Dosage: UNK
     Route: 065

REACTIONS (4)
  - Hepatitis [Unknown]
  - Hepatocellular injury [Unknown]
  - Drug-induced liver injury [Recovering/Resolving]
  - Drug interaction [Unknown]
